FAERS Safety Report 5895165-9 (Version None)
Quarter: 2008Q3

REPORT INFORMATION
  Report Type: 
  Country: None (occurrence: None)
  Receive Date: 20080923
  Receipt Date: 20080923
  Transmission Date: 20090109
  Serious: Yes (Hospitalization)
  Sender: FDA-Public Use
  Company Number: None

PATIENT
  Sex: Male
  Weight: 109 kg

DRUGS (8)
  1. IRINOTECAN HYDROCHLORIDE [Suspect]
     Indication: GLIOBLASTOMA MULTIFORME
     Dosage: 125MG/M2 DAY 1, 8, 22, 29 IV
     Route: 042
     Dates: start: 20070227, end: 20070306
  2. TEMODAR [Suspect]
     Indication: GLIOBLASTOMA MULTIFORME
     Dosage: 200MG/M2 DAYS 1-5 PO
     Route: 048
     Dates: start: 20070227, end: 20070303
  3. DECADRON [Concomitant]
  4. LORTAB [Concomitant]
  5. CELEXA [Concomitant]
  6. ZOFRAN [Concomitant]
  7. PEPCID [Concomitant]
  8. IMODIUM [Concomitant]

REACTIONS (1)
  - INFECTION [None]
